FAERS Safety Report 5003485-5 (Version None)
Quarter: 2006Q1

REPORT INFORMATION
  Report Type: 
  Country: None (occurrence: None)
  Receive Date: 20060317
  Receipt Date: 20060118
  Transmission Date: 20060701
  Serious: Yes (Hospitalization)
  Sender: FDA-Public Use
  Company Number: US-JNJFOC-20060103917

PATIENT
  Age: 34 Year
  Sex: Female
  Weight: 80.7403 kg

DRUGS (6)
  1. ORTHO EVRA [Suspect]
     Indication: CONTRACEPTION
     Dosage: 1 DOSE(S), 3 IN 4 WEEK
     Dates: start: 20040201, end: 20050710
  2. LANSOPRAZOLE [Concomitant]
  3. FLONASE [Concomitant]
  4. ACIPHEX [Concomitant]
  5. VENTOLIN [Concomitant]
  6. COUMADIN [Concomitant]

REACTIONS (3)
  - ANAEMIA [None]
  - PNEUMONIA [None]
  - PULMONARY EMBOLISM [None]
